FAERS Safety Report 7537231-8 (Version None)
Quarter: 2011Q2

REPORT INFORMATION
  Report Type: 
  Country: None (occurrence: None)
  Receive Date: 20110609
  Receipt Date: 20110526
  Transmission Date: 20111010
  Serious: Yes (Other)
  Sender: FDA-Public Use
  Company Number: JP-CEPHALON-2011002902

PATIENT
  Age: 73 Year
  Sex: Male

DRUGS (5)
  1. FAMOTIDINE [Concomitant]
     Dates: start: 20110301
  2. SULFAMETHOXAZOLE AND TRIMETHOPRIM [Concomitant]
     Dates: start: 20110301
  3. BENDAMUSTINE HCL [Suspect]
     Indication: MANTLE CELL LYMPHOMA
     Route: 042
     Dates: start: 20110502, end: 20110503
  4. FLUCONAZOLE [Concomitant]
     Dates: start: 20110301
  5. SODIUM GUALENATE [Concomitant]
     Dates: start: 20110301

REACTIONS (3)
  - VENOUS THROMBOSIS [None]
  - PLEURAL EFFUSION [None]
  - PULMONARY EMBOLISM [None]
